FAERS Safety Report 5406820-9 (Version None)
Quarter: 2007Q3

REPORT INFORMATION
  Report Type: 
  Country: None (occurrence: None)
  Receive Date: 20070807
  Receipt Date: 20070724
  Transmission Date: 20080115
  Serious: Yes (Congenital Anomaly, Other)
  Sender: FDA-Public Use
  Company Number: US-ELI_LILLY_AND_COMPANY-US200707006326

PATIENT

DRUGS (2)
  1. ZYPREXA [Suspect]
     Dosage: 5 MG, UNK
     Route: 064
  2. ZOLOFT /SCH/ [Concomitant]
     Dosage: 100 MG, UNK
     Route: 064

REACTIONS (2)
  - DRUG EXPOSURE DURING PREGNANCY [None]
  - TALIPES [None]
